FAERS Safety Report 12212110 (Version 1)
Quarter: 2016Q1

REPORT INFORMATION
  Report Type: Report from Study
  Country: US (occurrence: US)
  Receive Date: 20160325
  Receipt Date: 20160325
  Transmission Date: 20160526
  Serious: Yes (Other)
  Sender: FDA-Public Use
  Company Number: US-GILEAD-2016-0205306

PATIENT
  Age: 60 Year
  Sex: Male

DRUGS (2)
  1. IDELALISIB [Suspect]
     Active Substance: IDELALISIB
     Indication: CHRONIC LYMPHOCYTIC LEUKAEMIA
     Dosage: 2 MG/KG, UNK
     Route: 048
     Dates: start: 20150815
  2. IDELALISIB [Suspect]
     Active Substance: IDELALISIB
     Dosage: 3 MG/KG, UNK
     Route: 048

REACTIONS (2)
  - Off label use [Unknown]
  - Disease progression [Unknown]
